FAERS Safety Report 11497225 (Version 2)
Quarter: 2015Q4

REPORT INFORMATION
  Report Type: Report from Study
  Country: US (occurrence: US)
  Receive Date: 20150911
  Receipt Date: 20151016
  Transmission Date: 20160304
  Serious: Yes (Hospitalization, Other)
  Sender: FDA-Public Use
  Company Number: US-PFIZER INC-2015297305

PATIENT
  Age: 14 Year
  Sex: Female
  Weight: 56 kg

DRUGS (13)
  1. DEXAMETHASONE. [Suspect]
     Active Substance: DEXAMETHASONE
     Dosage: COURSE A, B: 5 MG, CYCLIC (TWICE DAILY ON DAYS 1-5)
     Route: 048
     Dates: start: 20141007, end: 20150112
  2. IFOSFAMIDE. [Suspect]
     Active Substance: IFOSFAMIDE
     Indication: ANAPLASTIC LARGE CELL LYMPHOMA T- AND NULL-CELL TYPES
     Dosage: COURSE A: 800 MG/M2, CYCLIC (OVER 60 MIN ON DAYS 1-5)
     Route: 042
     Dates: start: 20141007, end: 20150111
  3. HYDROCORTISONE. [Concomitant]
     Active Substance: HYDROCORTISONE
     Indication: ANAPLASTIC LARGE CELL LYMPHOMA T- AND NULL-CELL TYPES
     Dosage: PROPHASE: 7.5-12MG, ON DAY 1
     Route: 037
  4. CRIZOTINIB [Suspect]
     Active Substance: CRIZOTINIB
     Indication: ANAPLASTIC LARGE CELL LYMPHOMA T- AND NULL-CELL TYPES
     Dosage: COURSE A, B: 165 MG/M2, CYCLIC TWICE DAILY ON DAYS 1-21
     Route: 048
     Dates: start: 20141007, end: 20150121
  5. DEXAMETHASONE. [Suspect]
     Active Substance: DEXAMETHASONE
     Indication: ANAPLASTIC LARGE CELL LYMPHOMA T- AND NULL-CELL TYPES
     Dosage: PROPHASE: 5MG/M2 ORAL (PO) ONCE DAILY (QD) ON DAYS 1-2, AND 5MG/M2 PO TWICE DAILY (BID) ON DAYS 3-5
     Route: 048
  6. METHOTREXATE [Suspect]
     Active Substance: METHOTREXATE
     Indication: ANAPLASTIC LARGE CELL LYMPHOMA T- AND NULL-CELL TYPES
     Dosage: PROPHASE: 7.5-12MG INTRATHECAL (IT) ON DAY 1 (AGE BASED DOSING)
     Route: 037
  7. CYTARABINE. [Suspect]
     Active Substance: CYTARABINE
     Indication: ANAPLASTIC LARGE CELL LYMPHOMA T- AND NULL-CELL TYPES
     Dosage: PROPHASE: 15-24 MG ON DAY 1 (AGE BASED DOSING)
     Route: 037
  8. CYCLOPHOSPHAMIDE. [Concomitant]
     Active Substance: CYCLOPHOSPHAMIDE
     Dosage: COURSE B: 200 MG/M2, CYCLIC ( OVER 15-30 MINUTES ON DAYS 1 AND 2)
     Route: 042
     Dates: end: 20141220
  9. DOXORUBICIN HYDROCHLORIDE. [Concomitant]
     Active Substance: DOXORUBICIN HYDROCHLORIDE
     Indication: ANAPLASTIC LARGE CELL LYMPHOMA T- AND NULL-CELL TYPES
     Dosage: COURSE B: 25 MG/M2, CYCLIC (OVER 1-15 MIN ON DAYS 4 AND 5)
     Route: 042
     Dates: end: 20141220
  10. ETOPOSIDE. [Suspect]
     Active Substance: ETOPOSIDE
     Indication: ANAPLASTIC LARGE CELL LYMPHOMA T- AND NULL-CELL TYPES
     Dosage: COURSE A: 100 MG/M2, CYCLIC (OVER 2 HOURS ON DAYS 4 AND 5)
     Route: 042
     Dates: start: 20141010, end: 20150112
  11. METHOTREXATE [Suspect]
     Active Substance: METHOTREXATE
     Dosage: COURSE A, B: 3000 MG/M2, CYCLIC (OVER 3 HOURS ON DAY 1)
     Route: 042
     Dates: start: 20141007, end: 20150108
  12. CYCLOPHOSPHAMIDE. [Concomitant]
     Active Substance: CYCLOPHOSPHAMIDE
     Indication: ANAPLASTIC LARGE CELL LYMPHOMA T- AND NULL-CELL TYPES
     Dosage: PROPHASE: 200MG/M2 INTRAVENOUS (IV) OVER 15-30 MINUTES ON DAYS 1 AND 2
     Route: 042
  13. CYTARABINE. [Suspect]
     Active Substance: CYTARABINE
     Dosage: COURSE A: 150 MG/M2, CYCLIC OVER 1-30 MINUTES EVERY 12 HOURS ON DAYS 4 AND 5 (TOTAL 4 DOSES)
     Route: 042
     Dates: start: 20141010, end: 20150112

REACTIONS (2)
  - White blood cell count decreased [Unknown]
  - Pyrexia [Recovering/Resolving]

NARRATIVE: CASE EVENT DATE: 20150117
